FAERS Safety Report 5871767-0 (Version None)
Quarter: 2008Q3

REPORT INFORMATION
  Report Type: 
  Country: None (occurrence: None)
  Receive Date: 20080905
  Receipt Date: 20080827
  Transmission Date: 20090109
  Serious: Yes (Death)
  Sender: FDA-Public Use
  Company Number: JP-BRISTOL-MYERS SQUIBB COMPANY-14323687

PATIENT
  Age: 61 Year
  Sex: Male

DRUGS (1)
  1. ENDOXAN [Suspect]
     Indication: MYCOSIS FUNGOIDES
     Route: 065

REACTIONS (1)
  - BLADDER CANCER [None]
